FAERS Safety Report 6150417-2 (Version None)
Quarter: 2009Q2

REPORT INFORMATION
  Report Type: 
  Country: None (occurrence: None)
  Receive Date: 20090409
  Receipt Date: 20090408
  Transmission Date: 20091009
  Serious: Yes (Death, Other)
  Sender: FDA-Public Use
  Company Number: US-BRISTOL-MYERS SQUIBB COMPANY-14580062

PATIENT
  Age: 61 Year
  Sex: Male

DRUGS (13)
  1. AVAPRO [Suspect]
  2. DEMADEX [Concomitant]
  3. GLUCOPHAGE [Concomitant]
  4. ASPIRIN [Concomitant]
  5. IMDUR [Concomitant]
  6. K-DUR [Concomitant]
  7. LISINOPRIL [Concomitant]
  8. NORVASC [Concomitant]
  9. BYETTA [Concomitant]
  10. DOXAZOSIN MESYLATE [Concomitant]
  11. TRICOR [Concomitant]
  12. LANTUS [Concomitant]
  13. HUMALOG [Concomitant]

REACTIONS (4)
  - DEATH [None]
  - HEPATOTOXICITY [None]
  - RENAL FAILURE ACUTE [None]
  - RENAL TUBULAR NECROSIS [None]
